FAERS Safety Report 6568750-9 (Version None)
Quarter: 2010Q1

REPORT INFORMATION
  Report Type: 
  Country: None (occurrence: None)
  Receive Date: 20100203
  Receipt Date: 20100201
  Transmission Date: 20100710
  Serious: Yes (Death, Other)
  Sender: FDA-Public Use
  Company Number: PHEH2008US02891

PATIENT
  Sex: Male

DRUGS (22)
  1. ZOMETA [Suspect]
     Indication: PROSTATE CANCER
     Dosage: 4 MG IV
     Route: 042
     Dates: start: 20030701, end: 20060124
  2. LUPRON [Concomitant]
     Dosage: 22.5 MG IM
  3. ARANESP [Concomitant]
     Dosage: 300 MCG
  4. TAXOTERE [Concomitant]
     Dosage: 75 MG IM
  5. RED BLOOD CELLS [Concomitant]
     Dosage: 2 UNITS
  6. PERCOCET [Concomitant]
     Indication: PAIN
     Dosage: 1-2 TABS PRN Q 4-6 HRS
     Route: 048
  7. VANCOMYCIN [Concomitant]
     Dosage: 1250 MG IV OVER 24 HRS FOR 5 WEEKSUNK
     Route: 042
     Dates: start: 20070101
  8. LEVAQUIN [Concomitant]
     Dosage: 750 MG, QD
     Route: 048
     Dates: end: 20070920
  9. PINDOLOL [Concomitant]
     Dosage: 5 MG, BID
  10. BIOTENE [Concomitant]
     Dosage: 30 CC SWISH AND SPIT EVERY 4 HOURS
  11. TYLENOL-500 [Concomitant]
     Dosage: AS NEEDED
  12. ^BANOXIN^ [Concomitant]
     Dosage: 125 MCG QD PO
  13. ^CARBO AUC5/TAXOL 80^ [Concomitant]
  14. RADIATION THERAPY [Concomitant]
  15. CASODEX [Concomitant]
  16. FLOMAX [Concomitant]
     Dosage: UNK
  17. MAXZIDE [Concomitant]
     Dosage: UNK
  18. ZETIA [Concomitant]
     Dosage: UNK
  19. LIPITOR [Concomitant]
     Dosage: UNK
  20. LANOXIN [Concomitant]
     Dosage: UNK
  21. SENNA [Concomitant]
     Dosage: UNK
  22. ASPIRIN [Concomitant]
     Dosage: 1 PER DAY

REACTIONS (25)
  - ANHEDONIA [None]
  - ANXIETY [None]
  - ARRHYTHMIA [None]
  - BONE DISORDER [None]
  - CONSTIPATION [None]
  - DEATH [None]
  - DENTAL CARIES [None]
  - DEPRESSION [None]
  - DISABILITY [None]
  - ENDODONTIC PROCEDURE [None]
  - GINGIVAL ERYTHEMA [None]
  - GINGIVAL HYPERTROPHY [None]
  - HERPES ZOSTER [None]
  - INFECTION [None]
  - INGUINAL HERNIA [None]
  - INJURY [None]
  - JAW FRACTURE [None]
  - JAW OPERATION [None]
  - OSTEONECROSIS [None]
  - PAIN [None]
  - PAIN IN JAW [None]
  - SPINAL OSTEOARTHRITIS [None]
  - SWELLING FACE [None]
  - TOOTH EXTRACTION [None]
  - TOOTH FRACTURE [None]
